FAERS Safety Report 8422292-4 (Version None)
Quarter: 2012Q2

REPORT INFORMATION
  Report Type: 
  Country: None (occurrence: None)
  Receive Date: 20120323
  Receipt Date: 20111129
  Transmission Date: 20120825
  Serious: Yes (Hospitalization)
  Sender: FDA-Public Use
  Company Number: 163-21880-11021217

PATIENT
  Age: 49 Year
  Sex: Male
  Weight: 97.7 kg

DRUGS (12)
  1. REVLIMID [Suspect]
     Indication: MULTIPLE MYELOMA
     Dosage: 15 MG, DAILY X 21 DAYS ON, 7 DAYS OFF, PO ; 10 MG, DAILY X 28 DAYS, PO
     Route: 048
     Dates: start: 20091224, end: 20110203
  2. REVLIMID [Suspect]
     Indication: MULTIPLE MYELOMA
     Dosage: 15 MG, DAILY X 21 DAYS ON, 7 DAYS OFF, PO ; 10 MG, DAILY X 28 DAYS, PO
     Route: 048
     Dates: start: 20110210
  3. ASPIRIN [Concomitant]
  4. PROPRANOLOL [Concomitant]
  5. CHOLECALCIFEROL (COLECALCIFEROL) [Concomitant]
  6. PAMIDRONATE DISODIUM [Concomitant]
  7. METHADONE HCL [Concomitant]
  8. FLUTICASONE PROPIONATE [Concomitant]
  9. ALBUTEROL HFA (SALBUTAMOL) [Concomitant]
  10. GABAPENTIN [Concomitant]
  11. DULOXETINE HYDROCHLORIDE [Concomitant]
  12. LEVOTHYROXINE SODIUM [Concomitant]

REACTIONS (3)
  - BACK PAIN [None]
  - PNEUMONIA [None]
  - HEADACHE [None]
